FAERS Safety Report 6100127-2 (Version None)
Quarter: 2009Q1

REPORT INFORMATION
  Report Type: 
  Country: None (occurrence: None)
  Receive Date: 20090303
  Receipt Date: 20090223
  Transmission Date: 20090719
  Serious: Yes (Hospitalization)
  Sender: FDA-Public Use
  Company Number: DK-BIOGENIDEC-2009BI006399

PATIENT
  Age: 46 Year
  Sex: Female
  Weight: 66 kg

DRUGS (2)
  1. AVONEX [Suspect]
     Indication: MULTIPLE SCLEROSIS
     Route: 030
     Dates: start: 20050602
  2. METHYLPREDNISOLONE VS PLACEBO [Concomitant]
     Indication: MULTIPLE SCLEROSIS
     Dates: start: 20050908

REACTIONS (1)
  - UTERINE LEIOMYOMA [None]
